FAERS Safety Report 25196924 (Version 1)
Quarter: 2025Q2

REPORT INFORMATION
  Report Type: Spontaneous
  Country: CN (occurrence: CN)
  Receive Date: 20250415
  Receipt Date: 20250415
  Transmission Date: 20250716
  Serious: Yes (Hospitalization)
  Sender: SANDOZ
  Company Number: CN-002147023-NVSC2025CN059769

PATIENT
  Age: 53 Year
  Sex: Male
  Weight: 55 kg

DRUGS (1)
  1. TOBRADEX [Suspect]
     Active Substance: DEXAMETHASONE\TOBRAMYCIN
     Indication: Eye infection
     Dosage: 0.05 ML, QID
     Route: 047
     Dates: start: 20250326, end: 20250329

REACTIONS (5)
  - Corneal oedema [Unknown]
  - Scleral disorder [Unknown]
  - Conjunctival laceration [Recovering/Resolving]
  - Impaired healing [Recovering/Resolving]
  - Conjunctival hyperaemia [Unknown]

NARRATIVE: CASE EVENT DATE: 20250327
